FAERS Safety Report 8031003-6 (Version None)
Quarter: 2011Q4

REPORT INFORMATION
  Report Type: 
  Country: None (occurrence: None)
  Receive Date: 20111202
  Receipt Date: 20090724
  Transmission Date: 20120403
  Serious: Yes (Hospitalization, Other)
  Sender: FDA-Public Use
  Company Number: 2009SP016968

PATIENT
  Age: 35 Year
  Sex: Female
  Weight: 117.9352 kg

DRUGS (8)
  1. AZMACORT [Concomitant]
  2. RANITIDINE [Concomitant]
  3. METFORMIN HCL [Concomitant]
  4. ZANTAC [Concomitant]
  5. NUVARING [Suspect]
     Indication: MENSTRUAL DISORDER
     Dosage: 1 DF;QM; VAG
     Route: 067
     Dates: start: 20061101, end: 20070501
  6. LIPITOR [Concomitant]
  7. IBUPROFEN [Concomitant]
  8. BENICAR [Concomitant]

REACTIONS (9)
  - DYSPEPSIA [None]
  - CANDIDIASIS [None]
  - BRONCHITIS [None]
  - PULMONARY EMBOLISM [None]
  - DYSPHONIA [None]
  - INSOMNIA [None]
  - ASTHMA [None]
  - DEPRESSION [None]
  - DILATATION VENTRICULAR [None]
